FAERS Safety Report 6218085-9 (Version None)
Quarter: 2009Q2

REPORT INFORMATION
  Report Type: 
  Country: None (occurrence: None)
  Receive Date: 20090608
  Receipt Date: 20090601
  Transmission Date: 20091009
  Serious: No
  Sender: FDA-Public Use
  Company Number: US-B.I. PHARMACEUTICALS,INC./RIDGEFIELD-2009-BP-06704BP

PATIENT
  Age: 78 Year
  Sex: Female

DRUGS (5)
  1. MICARDIS [Suspect]
     Indication: HYPERTENSION
     Dosage: 80MG
     Route: 048
     Dates: start: 20080101, end: 20090526
  2. TENORMIN [Concomitant]
     Indication: HYPERTENSION
  3. HCTZ - AMILORIDE [Concomitant]
     Indication: CARDIAC FAILURE CONGESTIVE
  4. FUROSEMIDE [Concomitant]
     Indication: CARDIAC FAILURE CONGESTIVE
  5. POTASSIUM CHLORIDE [Concomitant]
     Indication: CARDIAC FAILURE CONGESTIVE

REACTIONS (4)
  - DYSPNOEA [None]
  - FLUID RETENTION [None]
  - HYPOTENSION [None]
  - PRODUCTIVE COUGH [None]
